FAERS Safety Report 20655864 (Version 1)
Quarter: 2022Q1

REPORT INFORMATION
  Report Type: Spontaneous
  Country: CA (occurrence: CA)
  Receive Date: 20220330
  Receipt Date: 20220330
  Transmission Date: 20220423
  Serious: Yes (Other)
  Sender: FDA-Public Use
  Company Number: CA-TEVA-2022-CA-2020680

PATIENT
  Age: 58 Year
  Sex: Female

DRUGS (11)
  1. METHOTREXATE SODIUM [Suspect]
     Active Substance: METHOTREXATE SODIUM
     Indication: Product used for unknown indication
     Route: 065
  2. ENBREL [Suspect]
     Active Substance: ETANERCEPT
     Indication: Product used for unknown indication
     Route: 065
  3. HUMIRA [Suspect]
     Active Substance: ADALIMUMAB
     Indication: Product used for unknown indication
     Route: 058
  4. XELJANZ [Suspect]
     Active Substance: TOFACITINIB CITRATE
     Indication: Rheumatoid arthritis
     Dosage: 10 MILLIGRAM DAILY;
     Route: 048
  5. XELJANZ [Suspect]
     Active Substance: TOFACITINIB CITRATE
     Route: 048
  6. CELEBREX [Concomitant]
     Active Substance: CELECOXIB
     Indication: Product used for unknown indication
  7. DEPO-MEDROL [Concomitant]
     Active Substance: METHYLPREDNISOLONE ACETATE
     Indication: Product used for unknown indication
  8. DESOXIMETASONE [Concomitant]
     Active Substance: DESOXIMETASONE
     Indication: Product used for unknown indication
  9. ERELZI [Concomitant]
     Active Substance: ETANERCEPT-SZZS
     Indication: Product used for unknown indication
  10. HYDROXYCHLOROQUINE [Concomitant]
     Active Substance: HYDROXYCHLOROQUINE
     Indication: Product used for unknown indication
  11. SIMPONI [Concomitant]
     Active Substance: GOLIMUMAB
     Indication: Product used for unknown indication

REACTIONS (13)
  - Arthropathy [Unknown]
  - Cough [Unknown]
  - Herpes zoster [Unknown]
  - Hypokalaemia [Unknown]
  - Inflammation [Unknown]
  - Injection site reaction [Unknown]
  - Medical device discomfort [Unknown]
  - Rheumatoid arthritis [Unknown]
  - Stress [Unknown]
  - C-reactive protein increased [Unknown]
  - Liver function test abnormal [Unknown]
  - Drug ineffective [Unknown]
  - Adverse drug reaction [Unknown]
